FAERS Safety Report 9426940 (Version 2)
Quarter: 2015Q2

REPORT INFORMATION
  Report Type: Spontaneous
  Country: DK (occurrence: DK)
  Receive Date: 20130730
  Receipt Date: 20150522
  Transmission Date: 20150821
  Serious: Yes (Other)
  Sender: FDA-Public Use
  Company Number: DK-RANBAXY-2013R1-71701

PATIENT
  Age: 41 Year
  Sex: Female

DRUGS (7)
  1. MIRTAZAPINE. [Interacting]
     Active Substance: MIRTAZAPINE
     Indication: PRODUCT USED FOR UNKNOWN INDICATION
     Dosage: UNK
     Route: 065
  2. VINCRISTINE [Interacting]
     Active Substance: VINCRISTINE
     Indication: EWING^S SARCOMA
     Dosage: 5 CYCLES AT 3 WEEKS INTERVAL AT DOSE OF 2 MG, SINGLE
     Route: 065
  3. PREDNISOLONE. [Interacting]
     Active Substance: PREDNISOLONE
     Indication: PRODUCT USED FOR UNKNOWN INDICATION
     Dosage: UNK
     Route: 065
  4. DOXORUBICIN [Suspect]
     Active Substance: DOXORUBICIN
     Indication: EWING^S SARCOMA
     Dosage: 5 CYCLES AT 3 WEEKS INTERVAL AT DOSE OF 900MG OVER 9 DAYS
     Route: 065
  5. ETOPOSIDE. [Interacting]
     Active Substance: ETOPOSIDE
     Indication: EWING^S SARCOMA
     Dosage: 5 CYCLES AT 3 WEEKS INTERVAL AT DOSE OF 900MG OVER 9 DAYS
     Route: 065
  6. IFOSFAMIDE. [Interacting]
     Active Substance: IFOSFAMIDE
     Indication: EWING^S SARCOMA
     Dosage: 5 CYCLES AT 3 WEEKS INTERVAL AT DOSE OF 6G OVER 9 DAYS
     Route: 065
  7. FLUCONAZOLE. [Interacting]
     Active Substance: FLUCONAZOLE
     Indication: ORAL CANDIDIASIS
     Dosage: 100 MG, QD
     Route: 065

REACTIONS (5)
  - Mucosal inflammation [Unknown]
  - Bone marrow failure [Unknown]
  - Renal impairment [Unknown]
  - Drug interaction [Unknown]
  - Neurotoxicity [Recovering/Resolving]
